FAERS Safety Report 8571044-3 (Version None)
Quarter: 2012Q3

REPORT INFORMATION
  Report Type: 
  Country: None (occurrence: None)
  Receive Date: 20120730
  Receipt Date: 20120730
  Transmission Date: 20120928
  Serious: Yes (Death, Other)
  Sender: FDA-Public Use
  Company Number: None

PATIENT
  Age: 83 Year
  Sex: Female
  Weight: 87.5442 kg

DRUGS (1)
  1. ELOXATIN [Suspect]
     Indication: RECTAL CANCER
     Dosage: 243 MG ONCE IV DRIP
     Route: 041
     Dates: start: 20111221, end: 20111221

REACTIONS (2)
  - INCORRECT DOSE ADMINISTERED [None]
  - DRUG INTERACTION [None]
